FAERS Safety Report 22178536 (Version 11)
Quarter: 2023Q4

REPORT INFORMATION
  Report Type: Spontaneous
  Country: US (occurrence: US)
  Receive Date: 20230405
  Receipt Date: 20231025
  Transmission Date: 20240110
  Serious: Yes (Hospitalization, Other)
  Sender: FDA-Public Use
  Company Number: US-KARYOPHARM-2023KPT000970

PATIENT

DRUGS (40)
  1. XPOVIO [Suspect]
     Active Substance: SELINEXOR
     Indication: Plasma cell myeloma
     Dosage: 100 MG, WEEKLY
     Route: 048
     Dates: start: 20230313, end: 202304
  2. XPOVIO [Suspect]
     Active Substance: SELINEXOR
     Dosage: 80 MG, WEEKLY
     Route: 048
     Dates: start: 20230519
  3. XPOVIO [Suspect]
     Active Substance: SELINEXOR
     Dosage: 100 MG, WEEKLY
     Route: 048
     Dates: start: 2023, end: 2023
  4. XPOVIO [Suspect]
     Active Substance: SELINEXOR
     Dosage: 80 MG, WEEKLY
     Route: 048
     Dates: start: 20230725, end: 2023
  5. XPOVIO [Suspect]
     Active Substance: SELINEXOR
     Dosage: 40 MG, WEEKLY
     Route: 048
     Dates: start: 2023, end: 2023
  6. XPOVIO [Suspect]
     Active Substance: SELINEXOR
     Dosage: 80 MG, WEEKLY
     Route: 048
     Dates: start: 2023, end: 202309
  7. ACYCLOVIR [Concomitant]
     Active Substance: ACYCLOVIR
  8. AMLODIPINE [Concomitant]
     Active Substance: AMLODIPINE BESYLATE
  9. ATIVAN [Concomitant]
     Active Substance: LORAZEPAM
  10. BENZONATATE [Concomitant]
     Active Substance: BENZONATATE
  11. CLINDAMYCIN [Concomitant]
     Active Substance: CLINDAMYCIN
  12. DEXAMETHASONE [Concomitant]
     Active Substance: DEXAMETHASONE
  13. DILAUDID [Concomitant]
     Active Substance: HYDROMORPHONE HYDROCHLORIDE
  14. LOMOTIL [Concomitant]
     Active Substance: ATROPINE SULFATE\DIPHENOXYLATE HYDROCHLORIDE
  15. DOXYCYCLINE [Concomitant]
     Active Substance: DOXYCYCLINE
  16. DULOXETINE [Concomitant]
     Active Substance: DULOXETINE
  17. FUROSEMIDE [Concomitant]
     Active Substance: FUROSEMIDE
  18. GABAPENTIN [Concomitant]
     Active Substance: GABAPENTIN
  19. HEPARIN [Concomitant]
     Active Substance: HEPARIN SODIUM
  20. NORCO [Concomitant]
     Active Substance: ACETAMINOPHEN\HYDROCODONE BITARTRATE
  21. LEXAPRO [Concomitant]
     Active Substance: ESCITALOPRAM OXALATE
  22. LORAZEPAM [Concomitant]
     Active Substance: LORAZEPAM
  23. METHYLPHENIDATE [Concomitant]
     Active Substance: METHYLPHENIDATE
  24. METOPROLOL [Concomitant]
     Active Substance: METOPROLOL
  25. SODIUM CHLORIDE [Concomitant]
     Active Substance: SODIUM CHLORIDE
  26. NORTRIPTYLINE [Concomitant]
     Active Substance: NORTRIPTYLINE
  27. OXYCODONE [Concomitant]
     Active Substance: OXYCODONE
  28. OMEPRAZOLE [Concomitant]
     Active Substance: OMEPRAZOLE
  29. PERCOCET [Concomitant]
     Active Substance: ACETAMINOPHEN\OXYCODONE HYDROCHLORIDE
  30. PHENERGAN [Concomitant]
     Active Substance: PROMETHAZINE HYDROCHLORIDE
     Route: 042
  31. POMALYST [Concomitant]
     Active Substance: POMALIDOMIDE
  32. POSACONAZOLE [Concomitant]
     Active Substance: POSACONAZOLE
  33. PROCHLORPERAZINE [Concomitant]
     Active Substance: PROCHLORPERAZINE
  34. PROMETHAZINE DM [Concomitant]
     Active Substance: DEXTROMETHORPHAN HYDROBROMIDE\PROMETHAZINE HYDROCHLORIDE
     Route: 048
  35. PROTONIX [Concomitant]
     Active Substance: PANTOPRAZOLE SODIUM
  36. TRAMADOL [Concomitant]
     Active Substance: TRAMADOL\TRAMADOL HYDROCHLORIDE
  37. TRIAMCINOLONE [Concomitant]
     Active Substance: TRIAMCINOLONE
  38. VORICONAZOLE [Concomitant]
     Active Substance: VORICONAZOLE
  39. VYVANSE [Concomitant]
     Active Substance: LISDEXAMFETAMINE DIMESYLATE
  40. ZOFRAN [Concomitant]
     Active Substance: ONDANSETRON HYDROCHLORIDE

REACTIONS (16)
  - Osteonecrosis [Not Recovered/Not Resolved]
  - Foot fracture [Unknown]
  - Platelet count decreased [Not Recovered/Not Resolved]
  - Stomatitis [Not Recovered/Not Resolved]
  - COVID-19 [Unknown]
  - Hair growth abnormal [Not Recovered/Not Resolved]
  - Madarosis [Unknown]
  - Arthralgia [Unknown]
  - White matter lesion [Not Recovered/Not Resolved]
  - White blood cell count decreased [Unknown]
  - Taste disorder [Unknown]
  - Spinal cord neoplasm [Unknown]
  - Nausea [Not Recovered/Not Resolved]
  - Diarrhoea [Unknown]
  - Neutropenia [Unknown]
  - Asthenia [Unknown]

NARRATIVE: CASE EVENT DATE: 20230101
